FAERS Safety Report 9233106 (Version 1)
Quarter: 2013Q2

REPORT INFORMATION
  Report Type: Report from Study
  Country: DE (occurrence: DE)
  Receive Date: 20130416
  Receipt Date: 20130416
  Transmission Date: 20140414
  Serious: Yes (Other)
  Sender: FDA-Public Use
  Company Number: PHHY2013DE036391

PATIENT
  Sex: Female
  Weight: 50 kg

DRUGS (1)
  1. TOBI [Suspect]
     Indication: PSEUDOMONAS INFECTION
     Dosage: 1 DF, QD
     Dates: start: 2010

REACTIONS (2)
  - Infective pulmonary exacerbation of cystic fibrosis [Recovered/Resolved]
  - Haemoptysis [Recovered/Resolved]
